FAERS Safety Report 9149681 (Version 1)
Quarter: 2013Q1

REPORT INFORMATION
  Report Type: Spontaneous
  Country: US (occurrence: US)
  Receive Date: 20130308
  Receipt Date: 20130308
  Transmission Date: 20140127
  Serious: No
  Sender: FDA-Public Use
  Company Number: US-ENDO PHARMACEUTICALS INC.-OPCR20120173

PATIENT
  Sex: Male

DRUGS (2)
  1. OPANA ER 30MG [Suspect]
     Indication: BACK PAIN
     Dosage: 30 MG
     Route: 048
     Dates: start: 2012
  2. OPANA ER [Concomitant]
     Indication: BACK PAIN
     Dosage: 30 MG
     Dates: end: 2012

REACTIONS (4)
  - Throat irritation [Not Recovered/Not Resolved]
  - Dyspepsia [Not Recovered/Not Resolved]
  - Vomiting [Recovered/Resolved]
  - Drug effect delayed [Not Recovered/Not Resolved]
